FAERS Safety Report 13847328 (Version 3)
Quarter: 2017Q3

REPORT INFORMATION
  Report Type: Report from Study
  Country: AT (occurrence: AT)
  Receive Date: 20170808
  Receipt Date: 20170825
  Transmission Date: 20171127
  Serious: Yes (Hospitalization, Other)
  Sender: FDA-Public Use
  Company Number: AT-GILEAD-2015-0167631

PATIENT
  Age: 75 Year

DRUGS (2)
  1. RITUXIMAB. [Concomitant]
     Active Substance: RITUXIMAB
     Indication: CHRONIC LYMPHOCYTIC LEUKAEMIA
     Dosage: UNK
     Route: 065
     Dates: start: 20141008
  2. IDELALISIB [Suspect]
     Active Substance: IDELALISIB
     Indication: CHRONIC LYMPHOCYTIC LEUKAEMIA
     Dosage: 100 MG, BID
     Route: 065
     Dates: start: 20141008, end: 20151229

REACTIONS (11)
  - Urinary tract infection [Recovering/Resolving]
  - Hepatic cyst [Unknown]
  - Respiratory tract infection [Recovered/Resolved]
  - Productive cough [Recovered/Resolved]
  - Polyp [Recovered/Resolved]
  - Productive cough [Unknown]
  - Transaminases increased [Unknown]
  - Pneumonia [Recovered/Resolved]
  - Tumour haemorrhage [Recovering/Resolving]
  - Rectal cancer [Unknown]
  - Pneumonia [Recovering/Resolving]

NARRATIVE: CASE EVENT DATE: 20141008
